FAERS Safety Report 5225310-X (Version None)
Quarter: 2007Q1

REPORT INFORMATION
  Report Type: 
  Country: None (occurrence: None)
  Receive Date: 20070131
  Receipt Date: 20070119
  Transmission Date: 20070707
  Serious: Yes (Other)
  Sender: FDA-Public Use
  Company Number: AU-AVENTIS-200621743GDDC

PATIENT
  Age: 88 Year
  Sex: Female

DRUGS (21)
  1. LANTUS [Suspect]
     Route: 058
     Dates: start: 20060904, end: 20070115
  2. LIPEX                              /00848101/ [Concomitant]
  3. DIAMICRON [Concomitant]
  4. DILANTIN [Concomitant]
  5. DIURETICS [Concomitant]
  6. ALPRAZOLAM [Concomitant]
  7. THYROXIN [Concomitant]
  8. OSTELIN                            /00107901/ [Concomitant]
  9. CALTRATE                           /00108001/ [Concomitant]
  10. GLICLAZIDE [Concomitant]
  11. ACTOS [Concomitant]
  12. MOVICOL                            /01053601/ [Concomitant]
     Dosage: DOSE: 1 SACHET
  13. FRUSEMIDE [Concomitant]
  14. ENALAPRIL MALEATE [Concomitant]
  15. OMEPRAZOLE [Concomitant]
  16. SIMVASTATIN [Concomitant]
  17. GTN SPRAY [Concomitant]
  18. NITROGLYCERIN [Concomitant]
  19. PANAMAX [Concomitant]
  20. POLY TEARS [Concomitant]
  21. ALDACTONE [Concomitant]

REACTIONS (1)
  - CARDIAC FAILURE [None]
